FAERS Safety Report 4878885-4 (Version None)
Quarter: 2006Q1

REPORT INFORMATION
  Report Type: 
  Country: None (occurrence: None)
  Receive Date: 20060112
  Receipt Date: 20040414
  Transmission Date: 20060701
  Serious: Yes (Hospitalization, Other)
  Sender: FDA-Public Use
  Company Number: 2004SE02053

PATIENT
  Age: 27553 Day
  Sex: Male

DRUGS (7)
  1. ROSUVASTATIN [Suspect]
     Indication: HYPERCHOLESTEROLAEMIA
     Route: 048
     Dates: start: 20040223, end: 20040414
  2. FURON [Concomitant]
     Indication: CARDIAC FAILURE
     Route: 048
  3. VEROSPIRON [Concomitant]
     Indication: CARDIAC FAILURE
     Route: 048
  4. BETALOC ZOK [Concomitant]
     Indication: CARDIAC FAILURE
     Route: 048
  5. ANOPYRIN [Concomitant]
     Indication: CORONARY ARTERY DISEASE
     Route: 048
  6. ACCUPRO [Concomitant]
     Indication: CARDIAC FAILURE
     Route: 048
  7. MINIDIAB [Concomitant]
     Indication: DIABETES MELLITUS
     Route: 048

REACTIONS (2)
  - CHRONIC OBSTRUCTIVE PULMONARY DISEASE [None]
  - MYALGIA [None]
